FAERS Safety Report 11403629 (Version 2)
Quarter: 2015Q4

REPORT INFORMATION
  Report Type: Spontaneous
  Country: GB (occurrence: GB)
  Receive Date: 20150821
  Receipt Date: 20151014
  Transmission Date: 20160304
  Serious: Yes (Other)
  Sender: FDA-Public Use
  Company Number: GB-BAXALTA-2015BLT001144

PATIENT
  Age: 8 Year
  Sex: Male

DRUGS (3)
  1. FANDHI [Concomitant]
     Indication: PRODUCT USED FOR UNKNOWN INDICATION
  2. FEIBA [Suspect]
     Active Substance: ANTI-INHIBITOR COAGULANT COMPLEX
     Indication: HAEMOPHILIA A WITH ANTI FACTOR VIII
     Dosage: 2-3 TIMES A DAY
  3. TRANSAMIC ACID [Concomitant]
     Indication: THROMBOSIS

REACTIONS (2)
  - Haemarthrosis [Not Recovered/Not Resolved]
  - Drug administration error [Not Recovered/Not Resolved]

NARRATIVE: CASE EVENT DATE: 2015
